FAERS Safety Report 4708440-8 (Version None)
Quarter: 2005Q3

REPORT INFORMATION
  Report Type: 
  Country: None (occurrence: None)
  Receive Date: 20050707
  Receipt Date: 20050616
  Transmission Date: 20060218
  Serious: Yes (Death)
  Sender: FDA-Public Use
  Company Number: US-BRISTOL-MYERS SQUIBB COMPANY-13005822

PATIENT
  Age: 62 Year
  Sex: Female
  Weight: 75 kg

DRUGS (6)
  1. HYDREA [Suspect]
     Indication: MYELOPROLIFERATIVE DISORDER
  2. NEURONTIN [Concomitant]
  3. LOTENSIN [Concomitant]
  4. DARVOCET [Concomitant]
  5. INSULIN [Concomitant]
  6. ASPIRIN [Concomitant]

REACTIONS (1)
  - MALIGNANT NEOPLASM PROGRESSION [None]
